FAERS Safety Report 6462149-1 (Version None)
Quarter: 2009Q4

REPORT INFORMATION
  Report Type: 
  Country: None (occurrence: None)
  Receive Date: 20091130
  Receipt Date: 20091030
  Transmission Date: 20100525
  Serious: No
  Sender: FDA-Public Use
  Company Number: US-BAYER-200916429BCC

PATIENT
  Age: 79 Year
  Sex: Female
  Weight: 81 kg

DRUGS (16)
  1. ALEVE [Suspect]
     Indication: ARTHRALGIA
     Dosage: TOTAL DAILY DOSE: 220 MG  UNIT DOSE: 220 MG
     Route: 048
     Dates: start: 20090911, end: 20090913
  2. ALEVE [Suspect]
     Dosage: TOTAL DAILY DOSE: 220 MG  UNIT DOSE: 220 MG
     Route: 048
     Dates: start: 20091001, end: 20091003
  3. ALEVE [Suspect]
     Dosage: TOTAL DAILY DOSE: 220 MG  UNIT DOSE: 220 MG
     Route: 048
     Dates: start: 20091016, end: 20091019
  4. ALCOHOL [Suspect]
  5. BAYER 81 MG [Concomitant]
     Route: 065
  6. OMEPRAZOLE [Concomitant]
     Route: 065
  7. VERAPAMIL HCL [Concomitant]
     Route: 065
  8. BENICAR [Concomitant]
     Route: 065
  9. VYTORIN [Concomitant]
     Route: 065
  10. ASMANEX TWISTHALER [Concomitant]
     Route: 065
  11. FEXOFENADINE [Concomitant]
     Route: 065
  12. CENTRUM SILVER [Concomitant]
     Route: 065
  13. ASCORBIC ACID [Concomitant]
     Route: 065
  14. FOLIC ACID [Concomitant]
     Route: 065
  15. CALCIUM [Concomitant]
     Route: 065
  16. FISH OIL [Concomitant]
     Route: 065

REACTIONS (1)
  - VOMITING [None]
